FAERS Safety Report 11087041 (Version 1)
Quarter: 2015Q2

REPORT INFORMATION
  Report Type: Spontaneous
  Country: US (occurrence: None)
  Receive Date: 20150501
  Receipt Date: 20150501
  Transmission Date: 20150821
  Serious: Yes (Disabling)
  Sender: FDA-Public Use
  Company Number: None

PATIENT
  Age: 26 Year
  Sex: Female
  Weight: 43.55 kg

DRUGS (2)
  1. LUPRON DEPOT [Suspect]
     Active Substance: LEUPROLIDE ACETATE
     Indication: ENDOMETRIOSIS
     Dosage: ONE INJECTION ?EVERY THREE MONTHS?INTO THE MUSCLE
     Route: 030
     Dates: start: 20100228, end: 20101031
  2. LUPRON DEPOT [Suspect]
     Active Substance: LEUPROLIDE ACETATE
     Indication: UTERINE LEIOMYOMA
     Dosage: ONE INJECTION ?EVERY THREE MONTHS?INTO THE MUSCLE
     Route: 030
     Dates: start: 20100228, end: 20101031

REACTIONS (1)
  - Migraine [None]

NARRATIVE: CASE EVENT DATE: 20100228
